FAERS Safety Report 5077609-8 (Version None)
Quarter: 2006Q3

REPORT INFORMATION
  Report Type: 
  Country: None (occurrence: None)
  Receive Date: 20060810
  Receipt Date: 20060424
  Transmission Date: 20061208
  Serious: No
  Sender: FDA-Public Use
  Company Number: US-GLAXOSMITHKLINE-A0603005A

PATIENT
  Sex: Female

DRUGS (2)
  1. PAROXETINE HCL [Suspect]
     Dosage: 30MG UNKNOWN
     Route: 048
     Dates: start: 20060401, end: 20060401
  2. UNSPECIFIED DRUGS [Concomitant]

REACTIONS (7)
  - HYPERSENSITIVITY [None]
  - LENTIGO [None]
  - MUSCLE TIGHTNESS [None]
  - OEDEMA PERIPHERAL [None]
  - SCAB [None]
  - SKIN EXFOLIATION [None]
  - SKIN HAEMORRHAGE [None]
